FAERS Safety Report 15367159 (Version 1)
Quarter: 2018Q3

REPORT INFORMATION
  Report Type: Spontaneous
  Country: US (occurrence: US)
  Receive Date: 20180910
  Receipt Date: 20180910
  Transmission Date: 20181010
  Serious: Yes (Hospitalization)
  Sender: FDA-Public Use
  Company Number: US-ALLERGAN-1805207US

PATIENT
  Age: 82 Year
  Sex: Female

DRUGS (4)
  1. CARAFATE [Suspect]
     Active Substance: SUCRALFATE
     Indication: INTERNAL HAEMORRHAGE
     Dosage: BEFORE EVERY MEAL
     Route: 048
     Dates: start: 20180125
  2. CARAFATE [Suspect]
     Active Substance: SUCRALFATE
     Indication: DYSPEPSIA
  3. CARAFATE [Suspect]
     Active Substance: SUCRALFATE
     Indication: HIATUS HERNIA
  4. SYNTHROID [Concomitant]
     Active Substance: LEVOTHYROXINE SODIUM
     Dosage: UNK, UNKNOWN
     Route: 048

REACTIONS (3)
  - Dyspnoea [Recovered/Resolved]
  - Product container issue [Unknown]
  - Off label use [Unknown]

NARRATIVE: CASE EVENT DATE: 20180125
